FAERS Safety Report 23657848 (Version 2)
Quarter: 2024Q2

REPORT INFORMATION
  Report Type: Report from Study
  Country: US (occurrence: US)
  Receive Date: 20240321
  Receipt Date: 20240405
  Transmission Date: 20240715
  Serious: No
  Sender: FDA-Public Use
  Company Number: US-BRISTOL-MYERS SQUIBB COMPANY-2024-044389

PATIENT
  Age: 67 Year
  Sex: Female
  Weight: 95.254 kg

DRUGS (6)
  1. ELIQUIS [Suspect]
     Active Substance: APIXABAN
     Indication: Venous thrombosis limb
     Route: 048
     Dates: start: 202311
  2. ELIQUIS [Suspect]
     Active Substance: APIXABAN
     Indication: Peripheral artery thrombosis
  3. PLAVIX [Concomitant]
     Active Substance: CLOPIDOGREL BISULFATE
     Indication: Product used for unknown indication
  4. SYNTHROID [Concomitant]
     Active Substance: LEVOTHYROXINE SODIUM
     Indication: Thyroid disorder
  5. GABAPENTIN [Concomitant]
     Active Substance: GABAPENTIN
     Indication: Neuralgia
  6. PANTOPRAZOLE [Concomitant]
     Active Substance: PANTOPRAZOLE
     Indication: Gastrointestinal disorder

REACTIONS (5)
  - Hernia [Unknown]
  - Illness [Not Recovered/Not Resolved]
  - Cardiac disorder [Unknown]
  - Post procedural complication [Unknown]
  - Visual impairment [Unknown]
